FAERS Safety Report 5940177-X (Version None)
Quarter: 2008Q4

REPORT INFORMATION
  Report Type: 
  Country: None (occurrence: None)
  Receive Date: 20081104
  Receipt Date: 20081023
  Transmission Date: 20090506
  Serious: Yes (Hospitalization)
  Sender: FDA-Public Use
  Company Number: US-AMGEN-US313958

PATIENT
  Sex: Female

DRUGS (18)
  1. ENBREL [Suspect]
     Indication: RHEUMATOID ARTHRITIS
     Route: 058
     Dates: start: 20021101, end: 20050215
  2. ENBREL [Suspect]
     Route: 058
     Dates: start: 20050216, end: 20080702
  3. ENBREL [Suspect]
     Route: 058
     Dates: start: 20080708
  4. PREDNISONE TAB [Suspect]
     Route: 048
     Dates: start: 19960101, end: 19960101
  5. PREDNISONE TAB [Suspect]
     Route: 048
     Dates: start: 20050701
  6. METHOTREXATE [Suspect]
     Route: 048
     Dates: start: 20010801, end: 20060401
  7. METHOTREXATE [Suspect]
     Route: 048
     Dates: start: 20060601
  8. FORTEO [Concomitant]
     Route: 065
     Dates: start: 20051118
  9. PRILOSEC [Concomitant]
     Route: 065
     Dates: start: 20050513
  10. ASACOL [Concomitant]
     Route: 065
     Dates: start: 20050513
  11. FOLIC ACID [Concomitant]
     Route: 065
     Dates: start: 20060609
  12. CALCIUM/ERGOCALCIFEROL [Concomitant]
     Route: 065
     Dates: start: 20020724
  13. VITAMIN A [Concomitant]
     Route: 065
     Dates: start: 20060203
  14. SOMA [Concomitant]
     Route: 065
     Dates: start: 20060203
  15. XALATAN [Concomitant]
     Route: 047
     Dates: start: 20050818
  16. MULTI-VITAMINS [Concomitant]
     Route: 065
     Dates: start: 20050818
  17. HYZAAR [Concomitant]
     Route: 065
     Dates: start: 20020725
  18. ASCORBIC ACID [Concomitant]
     Route: 065
     Dates: start: 20020902

REACTIONS (2)
  - CHRONIC OBSTRUCTIVE PULMONARY DISEASE [None]
  - PNEUMONIA [None]
